FAERS Safety Report 6719002-5 (Version None)
Quarter: 2010Q2

REPORT INFORMATION
  Report Type: 
  Country: None (occurrence: None)
  Receive Date: 20100511
  Receipt Date: 20100510
  Transmission Date: 20101027
  Serious: Yes (Hospitalization)
  Sender: FDA-Public Use
  Company Number: US-ASTRAZENECA-2006UW06532

PATIENT
  Age: 16905 Day
  Sex: Female
  Weight: 78 kg

DRUGS (17)
  1. SEROQUEL [Suspect]
     Indication: SCHIZOAFFECTIVE DISORDER
     Dosage: 100 TO 300 MG
     Route: 048
     Dates: start: 20010101, end: 20060101
  2. SEROQUEL [Suspect]
     Indication: DEPRESSION
     Dosage: 100 TO 300 MG
     Route: 048
     Dates: start: 20010101, end: 20060101
  3. SEROQUEL [Suspect]
     Dosage: 25-300 MG
     Route: 048
     Dates: start: 20040801
  4. SEROQUEL [Suspect]
     Dosage: 25-300 MG
     Route: 048
     Dates: start: 20040801
  5. RISPERDAL [Suspect]
     Indication: SCHIZOAFFECTIVE DISORDER
     Dosage: 1 TO 3 MG
     Dates: start: 20020101, end: 20060101
  6. RISPERDAL [Suspect]
     Indication: DEPRESSION
     Dosage: 1 TO 3 MG
     Dates: start: 20020101, end: 20060101
  7. RISPERDAL [Suspect]
     Dosage: 1-3 MG
     Dates: start: 20030909
  8. RISPERDAL [Suspect]
     Dosage: 1-3 MG
     Dates: start: 20030909
  9. FOLIC ACID [Concomitant]
  10. THIAMINE [Concomitant]
  11. ABILIFY [Concomitant]
     Dosage: STRENGTH 10-15 MG
  12. TRAZODONE [Concomitant]
     Dosage: STRENGTH 50 MG
     Route: 065
  13. CLINDAMYCIN HCL [Concomitant]
     Dosage: STRENGTH 300MG
  14. MICONAZOLE [Concomitant]
     Route: 065
  15. LORAZEPAM [Concomitant]
     Dosage: STRENGTH 0.5-1MG
     Route: 065
  16. ALPRAZOLAM [Concomitant]
     Dosage: STRENGTH 1 MG
     Route: 065
  17. OXAZEPAM [Concomitant]
     Dosage: STRENGTH 30 MG
     Route: 065

REACTIONS (6)
  - ANAEMIA [None]
  - BLOOD PRESSURE INCREASED [None]
  - FATIGUE [None]
  - SCHIZOAFFECTIVE DISORDER [None]
  - TYPE 2 DIABETES MELLITUS [None]
  - VISION BLURRED [None]
